FAERS Safety Report 7994248-7 (Version None)
Quarter: 2011Q4

REPORT INFORMATION
  Report Type: 
  Country: None (occurrence: None)
  Receive Date: 20111220
  Receipt Date: 20110427
  Transmission Date: 20120403
  Serious: No
  Sender: FDA-Public Use
  Company Number: US-GLAXOSMITHKLINE-A0925662A

PATIENT

DRUGS (1)
  1. ALKERAN [Suspect]
     Indication: PROPHYLAXIS
     Dosage: 260MG UNKNOWN
     Route: 042
     Dates: start: 20110425

REACTIONS (3)
  - PRODUCT RECONSTITUTION ISSUE [None]
  - DRUG ADMINISTRATION ERROR [None]
  - PRODUCT QUALITY ISSUE [None]
